FAERS Safety Report 7661618-6 (Version None)
Quarter: 2011Q3

REPORT INFORMATION
  Report Type: 
  Country: None (occurrence: None)
  Receive Date: 20110805
  Receipt Date: 20101117
  Transmission Date: 20111222
  Serious: No
  Sender: FDA-Public Use
  Company Number: US-ABBOTT-10P-163-0686127-00

PATIENT

DRUGS (11)
  1. COUMADIN [Concomitant]
     Indication: PRODUCT USED FOR UNKNOWN INDICATION
  2. ASPIRIN [Concomitant]
     Indication: PRODUCT USED FOR UNKNOWN INDICATION
  3. NIASPAN [Suspect]
     Indication: PRODUCT USED FOR UNKNOWN INDICATION
     Dosage: 500MG EVERY NIGHTY
     Dates: start: 20101001, end: 20101101
  4. ZESTRIL [Concomitant]
     Indication: PRODUCT USED FOR UNKNOWN INDICATION
  5. LIPITOR [Concomitant]
     Indication: PRODUCT USED FOR UNKNOWN INDICATION
  6. CYMBALTA [Concomitant]
     Indication: PRODUCT USED FOR UNKNOWN INDICATION
  7. VICODIN [Concomitant]
     Indication: PRODUCT USED FOR UNKNOWN INDICATION
  8. COREG [Concomitant]
     Indication: PRODUCT USED FOR UNKNOWN INDICATION
  9. SOMA [Concomitant]
     Indication: PRODUCT USED FOR UNKNOWN INDICATION
  10. EFFIENT [Concomitant]
     Indication: PRODUCT USED FOR UNKNOWN INDICATION
  11. TEMAZEPAM [Concomitant]
     Indication: PRODUCT USED FOR UNKNOWN INDICATION

REACTIONS (1)
  - FLUSHING [None]
